FAERS Safety Report 23188749 (Version 3)
Quarter: 2025Q4

REPORT INFORMATION
  Report Type: Spontaneous
  Country: US (occurrence: US)
  Receive Date: 20231115
  Receipt Date: 20251016
  Transmission Date: 20260118
  Serious: Yes (Other)
  Sender: PFIZER
  Company Number: US-PFIZER INC-202300360758

PATIENT
  Age: 75 Year
  Sex: Male
  Weight: 129.25 kg

DRUGS (10)
  1. XELJANZ XR [Suspect]
     Active Substance: TOFACITINIB CITRATE
     Indication: Rheumatoid arthritis
     Dosage: 11 MG, 1X/DAY
     Dates: start: 2014
  2. CALCIUM/VITAMIN D NOS [Concomitant]
     Dosage: UNK
  3. SIMVASTATIN [Concomitant]
     Active Substance: SIMVASTATIN
     Dosage: 10 MG
  4. LOSARTAN POTASSIUM [Concomitant]
     Active Substance: LOSARTAN POTASSIUM
     Dosage: UNK
  5. OMEPRAZOLE [Concomitant]
     Active Substance: OMEPRAZOLE
     Dosage: 10 MG
  6. FAMOTIDINE [Concomitant]
     Active Substance: FAMOTIDINE
     Dosage: 10 MG
  7. PIOGLITAZONE [Concomitant]
     Active Substance: PIOGLITAZONE
     Dosage: UNK
  8. VITAMIN B [Concomitant]
     Active Substance: VITAMIN B
     Dosage: UNK
  9. BUMETANIDE [Concomitant]
     Active Substance: BUMETANIDE
     Dosage: UNK
  10. NAPROXEN [Concomitant]
     Active Substance: NAPROXEN
     Dosage: 125 MG

REACTIONS (2)
  - Diabetes mellitus [Unknown]
  - Pain [Recovered/Resolved]

NARRATIVE: CASE EVENT DATE: 20140101
